FAERS Safety Report 13431954 (Version 1)
Quarter: 2017Q2

REPORT INFORMATION
  Report Type: Spontaneous
  Country: JP (occurrence: JP)
  Receive Date: 20170412
  Receipt Date: 20170412
  Transmission Date: 20170830
  Serious: Yes (Death)
  Sender: FDA-Public Use
  Company Number: JP-PFIZER INC-2017157349

PATIENT
  Age: 82 Year
  Sex: Female

DRUGS (9)
  1. CLOPIDOGREL [Concomitant]
     Active Substance: CLOPIDOGREL BISULFATE
     Dosage: 75 MG, UNK
  2. SOLETON [Concomitant]
     Active Substance: ZALTOPROFEN
     Dosage: 80 MG, UNK
  3. MOHRUS [Concomitant]
     Active Substance: KETOPROFEN
     Dosage: 20 MG, UNK
     Route: 061
  4. LUPRAC [Concomitant]
     Active Substance: TORSEMIDE
     Dosage: 8 MG, UNK
  5. NOVORAPID [Concomitant]
     Active Substance: INSULIN ASPART
     Dosage: 50 IU/ML, UNK
  6. MUCOSTA [Concomitant]
     Active Substance: REBAMIPIDE
     Dosage: 100 MG, UNK
  7. CALBLOCK [Concomitant]
     Active Substance: AZELNIDIPINE
     Dosage: 8 MG, UNK
  8. SIGMART [Concomitant]
     Active Substance: NICORANDIL
     Dosage: 5 MG, 3X/DAY
  9. RHEUMATREX [Suspect]
     Active Substance: METHOTREXATE SODIUM
     Indication: RHEUMATOID ARTHRITIS
     Dosage: 4 MG, WEEKLY (2MG TWICE WEEKLY)
     Route: 048

REACTIONS (1)
  - Myocardial infarction [Fatal]

NARRATIVE: CASE EVENT DATE: 20170330
